FAERS Safety Report 7310593-2 (Version None)
Quarter: 2011Q1

REPORT INFORMATION
  Report Type: 
  Country: None (occurrence: None)
  Receive Date: 20110224
  Receipt Date: 20100312
  Transmission Date: 20110831
  Serious: No
  Sender: FDA-Public Use
  Company Number: US-BRISTOL-MYERS SQUIBB COMPANY-15017221

PATIENT
  Age: 37 Year
  Sex: Female

DRUGS (1)
  1. METFORMIN HCL [Suspect]
     Dosage: 1000MG EVERY NIGHT INCREASED INTO 750MG TWICE A DAY.

REACTIONS (2)
  - ABDOMINAL PAIN [None]
  - ABDOMINAL DISTENSION [None]
